FAERS Safety Report 17036455 (Version 1)
Quarter: 2019Q4

REPORT INFORMATION
  Report Type: Spontaneous
  Country: US (occurrence: US)
  Receive Date: 20191016
  Receipt Date: 20191016
  Transmission Date: 20200122
  Serious: No
  Sender: FDA-Public Use
  Company Number: None

PATIENT
  Age: 20 Year
  Sex: Female

DRUGS (1)
  1. ISENTRESS [Suspect]
     Active Substance: RALTEGRAVIR POTASSIUM
     Route: 048
     Dates: start: 201904

REACTIONS (3)
  - Pregnancy [None]
  - Maternal exposure timing unspecified [None]
  - Maternal drugs affecting foetus [None]

NARRATIVE: CASE EVENT DATE: 20190818
